FAERS Safety Report 18714099 (Version 1)
Quarter: 2021Q1

REPORT INFORMATION
  Report Type: Spontaneous
  Country: CN (occurrence: CN)
  Receive Date: 20210107
  Receipt Date: 20210107
  Transmission Date: 20210419
  Serious: Yes (Other)
  Sender: FDA-Public Use
  Company Number: CN-PFIZER INC-2021001091

PATIENT
  Age: 51 Year
  Sex: Female
  Weight: 71 kg

DRUGS (6)
  1. VFEND [Suspect]
     Active Substance: VORICONAZOLE
     Indication: SYMPTOMATIC TREATMENT
     Dosage: 400 MG, 1X/DAY
     Route: 048
     Dates: start: 20201225, end: 20201225
  2. VFEND [Suspect]
     Active Substance: VORICONAZOLE
     Dosage: 100 MG, 2X/DAY
     Route: 041
     Dates: start: 20201226, end: 20201229
  3. VFEND [Suspect]
     Active Substance: VORICONAZOLE
     Indication: SYMPTOMATIC TREATMENT
     Dosage: 400 MG, 1X/DAY
     Route: 041
     Dates: start: 20201225, end: 20201225
  4. NS [Concomitant]
     Active Substance: SODIUM CHLORIDE
     Dosage: 100 ML
     Route: 041
     Dates: start: 20201225
  5. DIGOXIN. [Suspect]
     Active Substance: DIGOXIN
     Indication: SYMPTOMATIC TREATMENT
     Dosage: 0.25 MG, 1X/DAY
     Route: 048
     Dates: start: 20201222, end: 20201226
  6. DIGOXIN. [Suspect]
     Active Substance: DIGOXIN
     Dosage: 0.125MG, 1X/DAY
     Route: 048
     Dates: start: 20201227, end: 20201230

REACTIONS (5)
  - Dysphoria [Recovering/Resolving]
  - Disorganised speech [Recovering/Resolving]
  - Altered state of consciousness [Recovering/Resolving]
  - Hallucination [Recovering/Resolving]
  - Mental disorder [Recovering/Resolving]

NARRATIVE: CASE EVENT DATE: 20201228
